FAERS Safety Report 13556340 (Version 2)
Quarter: 2019Q2

REPORT INFORMATION
  Report Type: Report from Study
  Country: US (occurrence: US)
  Receive Date: 20170517
  Receipt Date: 20190612
  Transmission Date: 20190711
  Serious: No
  Sender: FDA-Public Use
  Company Number: US-SA-2017SA027377

PATIENT
  Age: 65 Year
  Sex: Male

DRUGS (2)
  1. INSULIN GLARGINE [Suspect]
     Active Substance: INSULIN GLARGINE
     Indication: TYPE 2 DIABETES MELLITUS
     Dosage: 50 U, BID
     Dates: start: 201612
  2. INSULIN GLARGINE [Suspect]
     Active Substance: INSULIN GLARGINE
     Dosage: 65 U, BID
     Dates: start: 20190401

REACTIONS (6)
  - Diarrhoea [Unknown]
  - Hypoglycaemia [Unknown]
  - Inappropriate schedule of product administration [Unknown]
  - Drug administered in wrong device [Unknown]
  - Product dose omission [Unknown]
  - Blood glucose decreased [Unknown]

NARRATIVE: CASE EVENT DATE: 201612
